FAERS Safety Report 9704023 (Version 2)
Quarter: 2013Q4

REPORT INFORMATION
  Report Type: Spontaneous
  Country: US (occurrence: US)
  Receive Date: 20131122
  Receipt Date: 20131122
  Transmission Date: 20140711
  Serious: No
  Sender: FDA-Public Use
  Company Number: US-BRISTOL-MYERS SQUIBB COMPANY-18884767

PATIENT
  Age: 64 Year
  Sex: Male

DRUGS (2)
  1. BYETTA PEN DISPOSABLE [Suspect]
     Dates: start: 2007
  2. METFORMIN HCL XR [Suspect]

REACTIONS (2)
  - Blood glucose increased [Recovered/Resolved]
  - Weight decreased [Unknown]
